FAERS Safety Report 7950664-0 (Version None)
Quarter: 2011Q4

REPORT INFORMATION
  Report Type: 
  Country: None (occurrence: None)
  Receive Date: 20111201
  Receipt Date: 20111128
  Transmission Date: 20120403
  Serious: Yes (Hospitalization)
  Sender: FDA-Public Use
  Company Number: US-ACCORD-011465

PATIENT
  Age: 69 Year
  Sex: Male
  Weight: 133 kg

DRUGS (3)
  1. SIMVASTATIN [Suspect]
     Indication: PRODUCT USED FOR UNKNOWN INDICATION
  2. DAPTOMYCIN [Suspect]
     Indication: PRODUCT USED FOR UNKNOWN INDICATION
     Dosage: (8 MG/KG)
     Route: 042
  3. LEVOFLOXACIN [Concomitant]
     Route: 048

REACTIONS (3)
  - RHABDOMYOLYSIS [None]
  - DRUG INTERACTION [None]
  - BLOOD CREATININE INCREASED [None]
